FAERS Safety Report 4932869-6 (Version None)
Quarter: 2006Q2

REPORT INFORMATION
  Report Type: 
  Country: None (occurrence: None)
  Receive Date: 20060302
  Receipt Date: 20060302
  Transmission Date: 20061013
  Serious: No
  Sender: FDA-Public Use
  Company Number: None

PATIENT
  Age: 57 Year
  Sex: Male

DRUGS (2)
  1. AMILORIDE HYDROCHLORIDE [Suspect]
     Indication: HYPERTENSION
     Dosage: 5 MG   BID   PO
     Route: 048
  2. CISPLATIN [Suspect]
     Indication: LARYNGEAL CANCER
     Dates: start: 20051001

REACTIONS (2)
  - HYPERKALAEMIA [None]
  - RENAL FAILURE ACUTE [None]
